FAERS Safety Report 8203983-7 (Version None)
Quarter: 2012Q1

REPORT INFORMATION
  Report Type: 
  Country: None (occurrence: None)
  Receive Date: 20120309
  Receipt Date: 20120224
  Transmission Date: 20120608
  Serious: Yes (Hospitalization)
  Sender: FDA-Public Use
  Company Number: DEP_00577_2012

PATIENT
  Sex: Male
  Weight: 82.1011 kg

DRUGS (10)
  1. ASPIRIN [Concomitant]
  2. CARVEDILOL [Concomitant]
  3. TORSEMIDE [Concomitant]
  4. OXYCONTIN [Concomitant]
  5. FLOMAX [Concomitant]
  6. GRALISE [Suspect]
     Indication: OFF LABEL USE
     Dosage: ORAL
     Route: 048
     Dates: start: 20120214, end: 20120221
  7. PROSCAR [Concomitant]
  8. RANEXA [Concomitant]
  9. RAMIPRIL [Concomitant]
  10. LIPITOR [Concomitant]

REACTIONS (2)
  - DIARRHOEA [None]
  - HYPOTENSION [None]
